FAERS Safety Report 15607708 (Version 2)
Quarter: 2018Q4

REPORT INFORMATION
  Report Type: Report from Study
  Country: US (occurrence: US)
  Receive Date: 20181112
  Receipt Date: 20181217
  Transmission Date: 20190205
  Serious: Yes (Other)
  Sender: FDA-Public Use
  Company Number: US-GILEAD-2018-0372842

PATIENT
  Age: 75 Year
  Sex: Male

DRUGS (2)
  1. AMBRISENTAN [Suspect]
     Active Substance: AMBRISENTAN
     Indication: PRODUCT USED FOR UNKNOWN INDICATION
     Dosage: 5 MG, QD
     Route: 065
     Dates: start: 20180427
  2. ADEMPAS [Concomitant]
     Active Substance: RIOCIGUAT

REACTIONS (7)
  - Nasal congestion [Not Recovered/Not Resolved]
  - Blood pressure decreased [Unknown]
  - Respiratory tract infection [Unknown]
  - Deafness unilateral [Unknown]
  - Oxygen consumption increased [Unknown]
  - Sinusitis [Unknown]
  - Upper respiratory tract congestion [Not Recovered/Not Resolved]
